FAERS Safety Report 8126132-2 (Version None)
Quarter: 2012Q1

REPORT INFORMATION
  Report Type: 
  Country: None (occurrence: None)
  Receive Date: 20120209
  Receipt Date: 20120203
  Transmission Date: 20120608
  Serious: Yes (Other)
  Sender: FDA-Public Use
  Company Number: PHHY2012JP009828

PATIENT
  Age: 49 Year
  Sex: Male

DRUGS (1)
  1. LAMISIL [Suspect]
     Indication: TINEA CAPITIS
     Dosage: 125 MG, UNK
     Route: 048
     Dates: start: 20110927, end: 20120201

REACTIONS (1)
  - BLOOD TRIGLYCERIDES INCREASED [None]
